FAERS Safety Report 6292293-3 (Version None)
Quarter: 2009Q3

REPORT INFORMATION
  Report Type: 
  Country: None (occurrence: None)
  Receive Date: 20090731
  Receipt Date: 20090722
  Transmission Date: 20100115
  Serious: Yes (Hospitalization, Other)
  Sender: FDA-Public Use
  Company Number: DE-ROCHE-641076

PATIENT
  Sex: Male
  Weight: 75 kg

DRUGS (2)
  1. MIRCERA [Suspect]
     Route: 042
     Dates: start: 20071017, end: 20080502
  2. MIRCERA [Suspect]
     Route: 042
     Dates: start: 20080502, end: 20090615

REACTIONS (2)
  - HAEMOGLOBIN DECREASED [None]
  - MALIGNANT MELANOMA [None]
